FAERS Safety Report 15449680 (Version 2)
Quarter: 2018Q4

REPORT INFORMATION
  Report Type: Report from Study
  Country: JP (occurrence: JP)
  Receive Date: 20181001
  Receipt Date: 20181206
  Transmission Date: 20190204
  Serious: Yes (Death)
  Sender: FDA-Public Use
  Company Number: JP-ACTELION-A-CH2018-179424

PATIENT
  Age: 64 Year
  Sex: Male

DRUGS (11)
  1. FUROSEMIDE. [Concomitant]
     Active Substance: FUROSEMIDE
  2. BAYASPIRIN [Concomitant]
     Active Substance: ASPIRIN
  3. OPSUMIT [Suspect]
     Active Substance: MACITENTAN
     Indication: PULMONARY ARTERIAL HYPERTENSION
     Dosage: 10 MG, OD
     Route: 048
     Dates: start: 20170912, end: 20171024
  4. BISOPROLOL [Concomitant]
     Active Substance: BISOPROLOL
  5. TRAZENTA [Concomitant]
     Active Substance: LINAGLIPTIN
  6. ACARBOSE. [Concomitant]
     Active Substance: ACARBOSE
  7. XARELTO [Concomitant]
     Active Substance: RIVAROXABAN
  8. FEBURIC [Concomitant]
     Active Substance: FEBUXOSTAT
  9. PITAVASTATIN CALCIUM [Concomitant]
     Active Substance: PITAVASTATIN CALCIUM
  10. ZACRAS [Concomitant]
     Active Substance: AMLODIPINE BESYLATE\AZILSARTAN
  11. OXYGEN. [Concomitant]
     Active Substance: OXYGEN

REACTIONS (4)
  - Brain hypoxia [Fatal]
  - Cardio-respiratory arrest [Fatal]
  - Pneumonia [Fatal]
  - Coma scale [Fatal]

NARRATIVE: CASE EVENT DATE: 20171024
